FAERS Safety Report 8775023 (Version 1)
Quarter: 2012Q4

REPORT INFORMATION
  Report Type: 
  Country: JP (occurrence: JP)
  Receive Date: 20120908
  Receipt Date: 20120908
  Transmission Date: 20130627
  Serious: Yes (Death, Life-Threatening, Hospitalization, Other)
  Sender: FDA-Public Use
  Company Number: JP-BAYER-2012-073126

PATIENT
  Age: 60 Year
  Sex: Male
  Weight: 56 kg

DRUGS (6)
  1. NEXAVAR [Suspect]
     Indication: HEPATIC NEOPLASM MALIGNANT
     Dosage: 400 mg, BID
     Route: 048
     Dates: start: 20120626, end: 20120703
  2. NEXAVAR [Suspect]
     Indication: HEPATIC NEOPLASM MALIGNANT
     Dosage: Daily dose 400 mg
     Route: 048
     Dates: start: 20120711, end: 20120717
  3. FAMOTIDINE [Concomitant]
     Indication: PORTAL HYPERTENSION
     Dosage: Daily dose 40 mg
     Route: 048
     Dates: start: 20120315, end: 20120815
  4. FAMOTIDINE [Concomitant]
     Indication: GASTRITIS
  5. DL-METHIONINE/GLYCYRRHIZIC ACID [Concomitant]
     Indication: LIVER DISORDER
     Dosage: Daily dose 150 mg
     Route: 048
     Dates: start: 20120403, end: 20120815
  6. HEPAN ED [Concomitant]
     Indication: HYPOALBUMINAEMIA
     Dosage: Daily dose 80 g
     Route: 048
     Dates: start: 20120312, end: 20120815

REACTIONS (7)
  - Hepatic function abnormal [Not Recovered/Not Resolved]
  - Intra-abdominal haemorrhage [Recovering/Resolving]
  - Abdominal pain [Recovering/Resolving]
  - Abdominal distension [Recovering/Resolving]
  - Hepatic cancer [Recovering/Resolving]
  - Hepatic failure [Fatal]
  - Hepatic cancer [Fatal]
